FAERS Safety Report 8396436 (Version 7)
Quarter: 2014Q1

REPORT INFORMATION
  Report Type: Spontaneous
  Country: JP (occurrence: JP)
  Receive Date: 20120208
  Receipt Date: 20140108
  Transmission Date: 20141002
  Serious: Yes (Other)
  Sender: FDA-Public Use
  Company Number: JP-PFIZER INC-2012031805

PATIENT
  Age: 80 Year
  Sex: Female

DRUGS (6)
  1. ARICEPT [Suspect]
     Indication: DEMENTIA ALZHEIMER^S TYPE
     Dosage: 5 MG DAILY
     Route: 048
     Dates: start: 20100901
  2. ATORVASTATIN CALCIUM [Interacting]
     Indication: DYSLIPIDAEMIA
     Dosage: 10 MG DAILY
     Route: 048
  3. BENIDIPINE [Interacting]
     Dosage: 8 MG DAILY
     Route: 048
     Dates: end: 20100901
  4. BENIDIPINE HYDROCHLORIDE [Concomitant]
     Dosage: UNK
     Route: 048
     Dates: end: 20100831
  5. ALFACALCIDOL [Concomitant]
     Dosage: 0.5 UG DAILY
     Route: 048
  6. RISEDRONATE SODIUM [Concomitant]
     Dosage: 17.5 MG, 1X/WEEK
     Route: 048

REACTIONS (2)
  - Drug interaction [Recovering/Resolving]
  - Electrocardiogram QT prolonged [Recovering/Resolving]
